FAERS Safety Report 5333784-9 (Version None)
Quarter: 2007Q2

REPORT INFORMATION
  Report Type: 
  Country: None (occurrence: None)
  Receive Date: 20070524
  Receipt Date: 20070510
  Transmission Date: 20071010
  Serious: Yes (Other)
  Sender: FDA-Public Use
  Company Number: US-ELI_LILLY_AND_COMPANY-US200705003301

PATIENT
  Age: 82 Year
  Sex: Female
  Weight: 75.283 kg

DRUGS (12)
  1. BYETTA [Suspect]
     Indication: DIABETES MELLITUS NON-INSULIN-DEPENDENT
     Dosage: 5 UG, 2/D
     Route: 058
     Dates: end: 20050101
  2. BYETTA [Suspect]
     Dosage: 10 UG, 2/D
     Route: 058
     Dates: start: 20050101
  3. GLIPIZIDE [Concomitant]
     Indication: DIABETES MELLITUS
     Dosage: 5 MG, 2/D
  4. CYANOCOBALAMIN [Concomitant]
     Route: 060
  5. METOPROLOL SUCCINATE [Concomitant]
     Dosage: 25 MG, 2/D
  6. ZETIA [Concomitant]
     Dosage: 10 MG, UNKNOWN
  7. HYDROCHLOROTHIAZIDE [Concomitant]
     Dosage: 25 MG, UNKNOWN
  8. FEMARA [Concomitant]
  9. ALPHA LIPOIC ACID [Concomitant]
  10. CRESTOR [Concomitant]
     Indication: BLOOD CHOLESTEROL
     Dosage: 5 MG, DAILY (1/D)
     Dates: start: 20070201, end: 20070201
  11. CRESTOR [Concomitant]
     Dosage: 5 MG, QOD
     Dates: start: 20070201
  12. DIOVAN /01319601/ [Concomitant]
     Indication: BLOOD PRESSURE ABNORMAL
     Dosage: 160 MG, DAILY (1/D)

REACTIONS (9)
  - BREAST CANCER [None]
  - CARPAL TUNNEL SYNDROME [None]
  - DRUG INTERACTION [None]
  - HYPOAESTHESIA [None]
  - NAUSEA [None]
  - NERVOUSNESS [None]
  - PAIN IN EXTREMITY [None]
  - VITAMIN D DEFICIENCY [None]
  - WEIGHT DECREASED [None]
